FAERS Safety Report 9025111 (Version 1)
Quarter: 2013Q1

REPORT INFORMATION
  Report Type: Spontaneous
  Country: US (occurrence: US)
  Receive Date: 20130122
  Receipt Date: 20130122
  Transmission Date: 20140127
  Serious: Yes (Other)
  Sender: FDA-Public Use
  Company Number: US-009507513-1301USA002179

PATIENT
  Age: 45 Year
  Sex: Female

DRUGS (2)
  1. SINGULAIR [Suspect]
  2. SERETIDE DISKUS [Suspect]
     Indication: ASTHMA
     Dosage: 4 PUFFS, QD
     Route: 055

REACTIONS (3)
  - Headache [Unknown]
  - Dizziness [Unknown]
  - Asthma [Unknown]
